FAERS Safety Report 25116662 (Version 2)
Quarter: 2025Q3

REPORT INFORMATION
  Report Type: Spontaneous
  Country: CA (occurrence: CA)
  Receive Date: 20250325
  Receipt Date: 20250704
  Transmission Date: 20251020
  Serious: Yes (Other)
  Sender: ORGANON
  Company Number: CA-ORGANON-O2503CAN002236

PATIENT
  Age: 45 Year
  Sex: Female

DRUGS (21)
  1. EZETIMIBE [Suspect]
     Active Substance: EZETIMIBE
     Indication: Type IIa hyperlipidaemia
     Route: 065
  2. EZETIMIBE [Suspect]
     Active Substance: EZETIMIBE
     Dosage: 1 DOSAGE FORM, QD (1 EVERY 1 DAYS)
     Route: 065
  3. ATORVASTATIN [Suspect]
     Active Substance: ATORVASTATIN
     Indication: Type IIa hyperlipidaemia
     Route: 065
  4. ATORVASTATIN [Suspect]
     Active Substance: ATORVASTATIN
     Dosage: 1 EVERY 1 DAYS (1 EVERY 1 DAYS)
     Route: 065
  5. EVINACUMAB [Suspect]
     Active Substance: EVINACUMAB
     Indication: Type IIa hyperlipidaemia
     Route: 058
  6. EVINACUMAB [Suspect]
     Active Substance: EVINACUMAB
     Route: 042
  7. EVINACUMAB [Suspect]
     Active Substance: EVINACUMAB
     Route: 058
  8. EVINACUMAB [Suspect]
     Active Substance: EVINACUMAB
     Route: 042
  9. JUXTAPID [Suspect]
     Active Substance: LOMITAPIDE MESYLATE
     Indication: Type IIa hyperlipidaemia
     Route: 065
  10. JUXTAPID [Suspect]
     Active Substance: LOMITAPIDE MESYLATE
     Route: 065
  11. JUXTAPID [Suspect]
     Active Substance: LOMITAPIDE MESYLATE
     Route: 065
  12. JUXTAPID [Suspect]
     Active Substance: LOMITAPIDE MESYLATE
     Route: 065
  13. JUXTAPID [Suspect]
     Active Substance: LOMITAPIDE MESYLATE
     Route: 065
  14. JUXTAPID [Suspect]
     Active Substance: LOMITAPIDE MESYLATE
     Route: 065
  15. ROSUVASTATIN [Suspect]
     Active Substance: ROSUVASTATIN
     Indication: Type IIa hyperlipidaemia
     Dosage: 1 DOSAGE FORM, QD (1 EVERY 1 DAYS)
     Route: 065
  16. ROSUVASTATIN [Suspect]
     Active Substance: ROSUVASTATIN
     Route: 065
  17. ATORVASTATIN CALCIUM [Suspect]
     Active Substance: ATORVASTATIN CALCIUM
     Indication: Type IIa hyperlipidaemia
     Dosage: UNK, 1 EVERY 1 DAYS(QD)
     Route: 065
  18. EVINACUMAB [Suspect]
     Active Substance: EVINACUMAB
     Indication: Type IIa hyperlipidaemia
     Route: 058
  19. LOMITAPIDE [Suspect]
     Active Substance: LOMITAPIDE
     Indication: Type IIa hyperlipidaemia
     Route: 065
  20. LOMITAPIDE [Suspect]
     Active Substance: LOMITAPIDE
     Route: 065
  21. EVINACUMAB [Suspect]
     Active Substance: EVINACUMAB
     Indication: Type IIa hyperlipidaemia
     Route: 042

REACTIONS (4)
  - Diarrhoea [Recovering/Resolving]
  - Hepatic steatosis [Recovering/Resolving]
  - International normalised ratio increased [Recovering/Resolving]
  - Nausea [Recovering/Resolving]
